FAERS Safety Report 16707866 (Version 3)
Quarter: 2020Q1

REPORT INFORMATION
  Report Type: Spontaneous
  Country: FR (occurrence: FR)
  Receive Date: 20190815
  Receipt Date: 20200207
  Transmission Date: 20200409
  Serious: Yes (Other)
  Sender: FDA-Public Use
  Company Number: FR-ASCEND THERAPEUTICS US, LLC-2073204

PATIENT
  Sex: Female

DRUGS (9)
  1. ESTROGEL [Suspect]
     Active Substance: ESTRADIOL
     Indication: PRODUCT USED FOR UNKNOWN INDICATION
  2. LEVOTHYROX 100 NF (LEVOTHYROXINE SODIUM)?INDICATIONS FOR USE: HYPOTHYR [Suspect]
     Active Substance: LEVOTHYROXINE SODIUM
     Dates: start: 20170717
  3. DOLIPRANE (PARACETAMOL)?INDICATION FOR USE: DRUG USE FOR UNKNOWN INDIC [Concomitant]
  4. LEVOTHYROX 100 NF (LEVOTHYROXINE SODIUM)?INDICATION FOR USE: HYPOTHYRO [Suspect]
     Active Substance: LEVOTHYROXINE SODIUM
     Dates: start: 20170717
  5. NOCTAMIDE (LORMETAZEPAM)?INDICATION FOR USE; DRUG USE FOR UNKNOWN INDI [Suspect]
     Active Substance: LORMETAZEPAM
  6. PROGESTAN (PROGESTERONE)?DRUG USE FOR UNKNOWN INDICATION [Suspect]
     Active Substance: PROGESTERONE
  7. SERTRALINE [Suspect]
     Active Substance: SERTRALINE HYDROCHLORIDE
  8. LEVOTHYROX 100 NF (LEVOTHYROXINE SODIUM)?INDICATION FOR USE: THYROIDEC [Suspect]
     Active Substance: LEVOTHYROXINE SODIUM
     Dates: start: 201703
  9. LEVOTHYROX 100 NF (LEVOTHYROXINE SODIUM) [Suspect]
     Active Substance: LEVOTHYROXINE SODIUM
     Dates: start: 20171001, end: 201806

REACTIONS (47)
  - Mental impairment [Unknown]
  - Depression [Unknown]
  - Alopecia [Not Recovered/Not Resolved]
  - General physical health deterioration [Recovering/Resolving]
  - Impatience [Unknown]
  - Rheumatic disorder [Unknown]
  - Irritability [Unknown]
  - Nausea [Not Recovered/Not Resolved]
  - Affect lability [Unknown]
  - Arthralgia [Not Recovered/Not Resolved]
  - Decreased appetite [Recovered/Resolved]
  - Dyspnoea [Unknown]
  - Abdominal pain [Not Recovered/Not Resolved]
  - Vertigo [Unknown]
  - Gastrointestinal disorder [Unknown]
  - Disturbance in attention [Unknown]
  - Asthenia [Recovering/Resolving]
  - Blood thyroid stimulating hormone increased [Unknown]
  - Gamma-glutamyltransferase increased [Unknown]
  - Abnormal behaviour [Unknown]
  - Feeling of body temperature change [Unknown]
  - Apathy [Unknown]
  - Nervousness [Unknown]
  - Pallor [Unknown]
  - Fatigue [Recovering/Resolving]
  - Muscle spasms [Unknown]
  - Headache [Not Recovered/Not Resolved]
  - Sleep disorder [Not Recovered/Not Resolved]
  - Gait disturbance [Unknown]
  - Crying [Unknown]
  - Diarrhoea [Not Recovered/Not Resolved]
  - Pain [Not Recovered/Not Resolved]
  - Balance disorder [Unknown]
  - Weight decreased [Recovering/Resolving]
  - Blood thyroid stimulating hormone decreased [Unknown]
  - Decreased interest [Unknown]
  - Impaired work ability [Unknown]
  - Skin discolouration [Unknown]
  - Anger [Unknown]
  - Drug interaction [Unknown]
  - Dizziness [Unknown]
  - Migraine [Not Recovered/Not Resolved]
  - Dysstasia [Unknown]
  - Eye irritation [Unknown]
  - Dark circles under eyes [Unknown]
  - Agitation [Unknown]
  - Hot flush [Not Recovered/Not Resolved]

NARRATIVE: CASE EVENT DATE: 2017
